FAERS Safety Report 7438939-5 (Version None)
Quarter: 2011Q2

REPORT INFORMATION
  Report Type: 
  Country: None (occurrence: None)
  Receive Date: 20110426
  Receipt Date: 20110419
  Transmission Date: 20111010
  Serious: Yes (Hospitalization)
  Sender: FDA-Public Use
  Company Number: QA-AMGEN-QATSP2011021315

PATIENT
  Age: 63 Year

DRUGS (5)
  1. NEULASTIM [Suspect]
     Indication: CHEMOTHERAPY
  2. RITUXIMAB [Suspect]
  3. CISPLATIN [Concomitant]
  4. ETOPOSIDE [Concomitant]
  5. CYTARABINE [Concomitant]

REACTIONS (2)
  - CEREBRAL INFARCTION [None]
  - CEREBROVASCULAR ACCIDENT [None]
